FAERS Safety Report 17344913 (Version 1)
Quarter: 2020Q1

REPORT INFORMATION
  Report Type: Spontaneous
  Country: US (occurrence: US)
  Receive Date: 20200129
  Receipt Date: 20200129
  Transmission Date: 20200409
  Serious: No
  Sender: FDA-Public Use
  Company Number: US-ALLERGAN-1949577US

PATIENT
  Sex: Female

DRUGS (1)
  1. BOTOX [Suspect]
     Active Substance: ONABOTULINUMTOXINA
     Indication: SKIN WRINKLING
     Dosage: 44 UNITS
     Dates: start: 20191126, end: 20191126

REACTIONS (5)
  - Lividity [Unknown]
  - Eyelid ptosis [Unknown]
  - Off label use [Unknown]
  - Brow ptosis [Unknown]
  - Visual impairment [Unknown]
